FAERS Safety Report 8608777-6 (Version None)
Quarter: 2012Q3

REPORT INFORMATION
  Report Type: 
  Country: None (occurrence: None)
  Receive Date: 20120821
  Receipt Date: 20120720
  Transmission Date: 20120928
  Serious: No
  Sender: FDA-Public Use
  Company Number: US-ASTRAZENECA-2012SE51837

PATIENT
  Age: 60 Year
  Sex: Male

DRUGS (3)
  1. SYMBICORT [Suspect]
     Dosage: 160/4.5 MCG, 2 PUFFS, TWO TIMES A DAY
     Route: 055
  2. ALTACE [Concomitant]
  3. HYDROZYNE [Concomitant]

REACTIONS (8)
  - ARTHROPOD BITE [None]
  - OFF LABEL USE [None]
  - DRUG DOSE OMISSION [None]
  - SWELLING FACE [None]
  - INTENTIONAL DRUG MISUSE [None]
  - LIP SWELLING [None]
  - ABDOMINAL PAIN UPPER [None]
  - SKIN TIGHTNESS [None]
